FAERS Safety Report 4436706-8 (Version None)
Quarter: 2004Q3

REPORT INFORMATION
  Report Type: 
  Country: None (occurrence: None)
  Receive Date: 20040728
  Receipt Date: 20040401
  Transmission Date: 20050211
  Serious: Yes (Other)
  Sender: FDA-Public Use
  Company Number: 205683

PATIENT
  Age: 10 Year
  Sex: Male

DRUGS (1)
  1. RITUXAN [Suspect]
     Dosage: 375 MG/M2, 1 WEEK

REACTIONS (1)
  - THROMBOCYTOPENIA [None]
